FAERS Safety Report 8394536-9 (Version None)
Quarter: 2012Q2

REPORT INFORMATION
  Report Type: 
  Country: None (occurrence: None)
  Receive Date: 20120530
  Receipt Date: 20120529
  Transmission Date: 20120825
  Serious: Yes (Other)
  Sender: FDA-Public Use
  Company Number: PHEH2011US00449

PATIENT
  Sex: Female

DRUGS (1)
  1. AREDIA [Suspect]
     Route: 042
     Dates: end: 19990101

REACTIONS (3)
  - NERVOUS SYSTEM DISORDER [None]
  - PARALYSIS [None]
  - HYPOAESTHESIA [None]
